FAERS Safety Report 21166077 (Version 2)
Quarter: 2023Q1

REPORT INFORMATION
  Report Type: Spontaneous
  Country: US (occurrence: US)
  Receive Date: 20220803
  Receipt Date: 20230310
  Transmission Date: 20230418
  Serious: Yes (Other)
  Sender: FDA-Public Use
  Company Number: US-BRISTOL-MYERS SQUIBB COMPANY-2022-083197

PATIENT
  Age: 69 Year
  Sex: Female
  Weight: 88.0 kg

DRUGS (2)
  1. REVLIMID [Suspect]
     Active Substance: LENALIDOMIDE
     Indication: Plasma cell myeloma
     Dosage: 14D ON 7D OFF
     Route: 048
  2. REVLIMID [Suspect]
     Active Substance: LENALIDOMIDE
     Dosage: 21 DAYS, 7 DAYS OFF
     Route: 048

REACTIONS (4)
  - Blood uric acid increased [Unknown]
  - Neuropathy peripheral [Unknown]
  - Off label use [Unknown]
  - Paraesthesia [Unknown]
